FAERS Safety Report 25004082 (Version 1)
Quarter: 2025Q1

REPORT INFORMATION
  Report Type: Spontaneous
  Country: GB (occurrence: GB)
  Receive Date: 20250224
  Receipt Date: 20250224
  Transmission Date: 20250408
  Serious: Yes (Other)
  Sender: MYLAN
  Company Number: GB-SUN PHARMACEUTICAL INDUSTRIES LTD-2025RR-495830

PATIENT
  Age: 83 Year
  Sex: Male

DRUGS (1)
  1. LENALIDOMIDE [Suspect]
     Active Substance: LENALIDOMIDE
     Indication: Plasma cell myeloma
     Dosage: 25 MILLIGRAM,QD, DAILY 3 WEEKS ON AND ONE WEEK OFF)

REACTIONS (1)
  - Renal impairment [Unknown]
